FAERS Safety Report 20203509 (Version 2)
Quarter: 2022Q1

REPORT INFORMATION
  Report Type: Spontaneous
  Country: IL (occurrence: IL)
  Receive Date: 20211219
  Receipt Date: 20220117
  Transmission Date: 20220423
  Serious: Yes (Other)
  Sender: FDA-Public Use
  Company Number: IL-LUPIN PHARMACEUTICALS INC.-2021-24507

PATIENT
  Sex: Male
  Weight: 2.145 kg

DRUGS (5)
  1. LAMOTRIGINE [Suspect]
     Active Substance: LAMOTRIGINE
     Indication: Depression
     Dosage: 100 MILLIGRAM, QD-UNTIL WEEK 4 + 0 DAYS
     Route: 064
  2. METOCLOPRAMIDE [Suspect]
     Active Substance: METOCLOPRAMIDE
     Indication: Hyperemesis gravidarum
     Dosage: 10 MILLIGRAM, PRN UNTIL WEEK 12 + 0 DAYS
     Route: 064
  3. VORTIOXETINE [Suspect]
     Active Substance: VORTIOXETINE
     Indication: Depression
     Dosage: 10 MILLIGRAM, QD UNTIL WEEK 4/0 DAYS
     Route: 064
  4. ESTROGENS [Suspect]
     Active Substance: ESTROGENS
     Indication: Endometriosis
     Dosage: 6 MILLIGRAM, QD-UNTIL WEEK 10 + 0 DAYS
     Route: 064
  5. PROGESTERONE [Suspect]
     Active Substance: PROGESTERONE
     Indication: Endometriosis
     Dosage: 600 MILLIGRAM, QD-UNTIL WEEK 10 + 0 DAYS
     Route: 064

REACTIONS (3)
  - Premature baby [Unknown]
  - Low birth weight baby [Unknown]
  - Foetal exposure during pregnancy [Unknown]
